FAERS Safety Report 5204398-6 (Version None)
Quarter: 2007Q1

REPORT INFORMATION
  Report Type: 
  Country: None (occurrence: None)
  Receive Date: 20070110
  Receipt Date: 20060315
  Transmission Date: 20070707
  Serious: No
  Sender: FDA-Public Use
  Company Number: US-BRISTOL-MYERS SQUIBB COMPANY-13316781

PATIENT
  Age: 12 Year
  Sex: Male

DRUGS (4)
  1. ABILIFY [Suspect]
     Indication: AUTISM
     Dosage: DOSAGE: 20-30 MG
  2. ABILIFY [Suspect]
     Indication: BIPOLAR DISORDER
     Dosage: DOSAGE: 20-30 MG
  3. LORAZEPAM [Concomitant]
     Route: 048
  4. SEROQUEL [Concomitant]
     Indication: AGGRESSION
     Dosage: DOSAGE: 25-50 MG

REACTIONS (1)
  - WEIGHT INCREASED [None]
